FAERS Safety Report 16990272 (Version 1)
Quarter: 2019Q4

REPORT INFORMATION
  Report Type: Spontaneous
  Country: US (occurrence: US)
  Receive Date: 20191102
  Receipt Date: 20191102
  Transmission Date: 20200122
  Serious: Yes (Disabling)
  Sender: FDA-Public Use
  Company Number: None

PATIENT
  Age: 5 Year
  Sex: Male
  Weight: 22.5 kg

DRUGS (3)
  1. ELDERBERRY GUMMIES [Concomitant]
  2. CHILDREN^S MULTIVITAMINS [Concomitant]
  3. METHYLPHENIDATE 10MG FOR RITALIN 10 MG [Suspect]
     Active Substance: METHYLPHENIDATE HYDROCHLORIDE
     Indication: ATTENTION DEFICIT/HYPERACTIVITY DISORDER
     Dosage: ?          QUANTITY:40 TABLET(S);?
     Route: 048
     Dates: start: 20191024

REACTIONS (3)
  - Increased appetite [None]
  - Product substitution issue [None]
  - Behaviour disorder [None]

NARRATIVE: CASE EVENT DATE: 20191024
